FAERS Safety Report 9902938 (Version 2)
Quarter: 2014Q1

REPORT INFORMATION
  Report Type: Spontaneous
  Country: IE (occurrence: IE)
  Receive Date: 20140217
  Receipt Date: 20140217
  Transmission Date: 20141002
  Serious: Yes (Life-Threatening, Hospitalization, Other)
  Sender: FDA-Public Use
  Company Number: PHHY2014IE013455

PATIENT
  Age: 10 Year
  Sex: Female
  Weight: 56 kg

DRUGS (4)
  1. EXJADE [Suspect]
     Indication: SICKLE CELL ANAEMIA
     Dosage: 1125 MG, QD
     Route: 048
     Dates: start: 201205, end: 20131217
  2. EXJADE [Suspect]
     Indication: SERUM FERRITIN INCREASED
  3. FOLIC ACID [Concomitant]
     Indication: HAEMOGLOBIN C DISEASE
     Dosage: 5 MG, QD (TREATMENT FOR MANY YEARS)
     Route: 048
  4. CALVEPEN [Concomitant]
     Indication: HAEMOGLOBIN C DISEASE
     Dosage: 333 MG, BID
     Route: 048

REACTIONS (13)
  - Renal impairment [Recovered/Resolved with Sequelae]
  - Blood creatinine increased [Recovered/Resolved]
  - Blood potassium decreased [Unknown]
  - Blood urea increased [Unknown]
  - Convulsion [Recovered/Resolved with Sequelae]
  - Hypertension [Recovered/Resolved with Sequelae]
  - Gastroenteritis viral [Unknown]
  - Adrenal disorder [Unknown]
  - Aspartate aminotransferase increased [Recovered/Resolved]
  - Alanine aminotransferase increased [Recovered/Resolved]
  - Sickle cell anaemia [Unknown]
  - Haemoglobin decreased [Unknown]
  - Dehydration [Unknown]
